FAERS Safety Report 8833748 (Version 1)
Quarter: 2012Q4

REPORT INFORMATION
  Report Type: 
  Country: US (occurrence: US)
  Receive Date: 20121010
  Receipt Date: 20121010
  Transmission Date: 20130627
  Serious: Yes (Death, Other)
  Sender: FDA-Public Use
  Company Number: US-PFIZER INC-2012250029

PATIENT
  Age: 56 Year
  Sex: Male
  Weight: 65.76 kg

DRUGS (1)
  1. CHANTIX [Suspect]
     Indication: SMOKING CESSATION THERAPY
     Dosage: 0.5 mg, 1x/day
     Route: 048
     Dates: start: 201201, end: 201202

REACTIONS (4)
  - Lung neoplasm malignant [Fatal]
  - Disease progression [Fatal]
  - Aphagia [Unknown]
  - Weight decreased [Unknown]
